FAERS Safety Report 19389637 (Version 1)
Quarter: 2021Q2

REPORT INFORMATION
  Report Type: Spontaneous
  Country: CA (occurrence: CA)
  Receive Date: 20210608
  Receipt Date: 20210608
  Transmission Date: 20210717
  Serious: Yes (Other)
  Sender: FDA-Public Use
  Company Number: CA-SAMSUNG BIOEPIS-SB-2021-13723

PATIENT
  Age: 55 Year
  Sex: Female
  Weight: 75 kg

DRUGS (5)
  1. ACETAMINOPHEN. [Concomitant]
     Active Substance: ACETAMINOPHEN
     Indication: PREMEDICATION
     Route: 065
  2. DIPHENHYDRAMINE. [Concomitant]
     Active Substance: DIPHENHYDRAMINE
     Indication: PREMEDICATION
     Route: 065
  3. METHYLPREDNISOLONE. [Concomitant]
     Active Substance: METHYLPREDNISOLONE
     Indication: PREMEDICATION
     Route: 065
  4. INFLIXIMAB [Suspect]
     Active Substance: INFLIXIMAB
     Indication: CROHN^S DISEASE
     Route: 042
  5. PREDNISONE. [Concomitant]
     Active Substance: PREDNISONE
     Indication: PRODUCT USED FOR UNKNOWN INDICATION
     Route: 065

REACTIONS (18)
  - Pain [Recovered/Resolved]
  - Blood pressure increased [Recovered/Resolved]
  - Vitamin D decreased [Recovered/Resolved]
  - Chest discomfort [Recovered/Resolved]
  - Poor venous access [Recovered/Resolved]
  - Inappropriate schedule of product administration [Recovered/Resolved]
  - Lymphocytosis [Recovered/Resolved]
  - Incorrect dose administered [Recovered/Resolved]
  - Eosinophilia [Recovered/Resolved]
  - White blood cell count increased [Recovered/Resolved]
  - Off label use [Recovered/Resolved]
  - Body temperature decreased [Recovered/Resolved]
  - Condition aggravated [Recovered/Resolved]
  - Cough [Recovered/Resolved]
  - Contusion [Recovered/Resolved]
  - Infection [Recovered/Resolved]
  - Mouth ulceration [Recovered/Resolved]
  - Neutrophil count increased [Recovered/Resolved]
